FAERS Safety Report 6595680-9 (Version None)
Quarter: 2010Q1

REPORT INFORMATION
  Report Type: 
  Country: None (occurrence: None)
  Receive Date: 20100222
  Receipt Date: 20100222
  Transmission Date: 20100710
  Serious: No
  Sender: FDA-Public Use
  Company Number: None

PATIENT
  Sex: Female

DRUGS (1)
  1. METOPROLOL SUCCINATE EXTENDED RELEASE [Suspect]
     Indication: HYPERTENSION
     Dosage: 25 MG XL 1 DAILY ORAL
     Route: 048
     Dates: start: 20090201

REACTIONS (2)
  - DIZZINESS [None]
  - PRODUCT QUALITY ISSUE [None]
